FAERS Safety Report 7959187-6 (Version None)
Quarter: 2011Q4

REPORT INFORMATION
  Report Type: 
  Country: None (occurrence: None)
  Receive Date: 20111206
  Receipt Date: 20111201
  Transmission Date: 20120403
  Serious: Yes (Life-Threatening, Hospitalization)
  Sender: FDA-Public Use
  Company Number: FR-SANOFI-AVENTIS-2011SA079012

PATIENT
  Age: 66 Year
  Sex: Male

DRUGS (8)
  1. ELOXATIN [Suspect]
     Indication: COLON CANCER
     Route: 033
     Dates: start: 20110210, end: 20110210
  2. FLUOROURACIL [Suspect]
     Indication: COLON CANCER
     Route: 033
     Dates: start: 20110210, end: 20110210
  3. LOVENOX [Concomitant]
     Route: 058
  4. ASPEGIC 325 [Concomitant]
     Route: 048
  5. NEXIUM [Concomitant]
     Route: 065
  6. ACETAMINOPHEN [Concomitant]
     Route: 065
  7. POTASSIUM CHLORIDE [Concomitant]
     Route: 065
  8. IMOVANE [Concomitant]
     Route: 048

REACTIONS (3)
  - CARDIAC FAILURE [None]
  - ALTERED STATE OF CONSCIOUSNESS [None]
  - RENAL FAILURE ACUTE [None]
